FAERS Safety Report 6709213-7 (Version None)
Quarter: 2010Q2

REPORT INFORMATION
  Report Type: 
  Country: None (occurrence: None)
  Receive Date: 20100503
  Receipt Date: 20100503
  Transmission Date: 20101027
  Serious: Yes (Other)
  Sender: FDA-Public Use
  Company Number: None

PATIENT
  Age: 30 Year
  Sex: Female
  Weight: 70 kg

DRUGS (1)
  1. YAZ [Suspect]
     Indication: CONTRACEPTION
     Dosage: 3MG/0.02MG 1 DAILY PO
     Route: 048
     Dates: start: 20090624, end: 20100109

REACTIONS (5)
  - CONTACT LENS INTOLERANCE [None]
  - HALO VISION [None]
  - MIGRAINE [None]
  - VISION BLURRED [None]
  - VISUAL IMPAIRMENT [None]
